FAERS Safety Report 19274461 (Version 3)
Quarter: 2021Q2

REPORT INFORMATION
  Report Type: Spontaneous
  Country: DE (occurrence: DE)
  Receive Date: 20210519
  Receipt Date: 20210621
  Transmission Date: 20210717
  Serious: Yes (Other)
  Sender: FDA-Public Use
  Company Number: DE-CAMURUS AB-DE-CAM-20-00122

PATIENT

DRUGS (16)
  1. BUVIDAL [Suspect]
     Active Substance: BUPRENORPHINE
     Dosage: 24 MILLIGRAM, QWK
     Route: 065
     Dates: start: 20200217, end: 20200217
  2. METOPROLOL RETARD SANDOZ [Suspect]
     Active Substance: METOPROLOL FUMARATE
     Dosage: 47 UNK, QD
     Route: 065
  3. QUETIAPINE FUMARATE. [Suspect]
     Active Substance: QUETIAPINE FUMARATE
     Indication: PRODUCT USED FOR UNKNOWN INDICATION
     Dosage: 400 MILLIGRAM, QD
     Route: 048
  4. SUBUTEX [Suspect]
     Active Substance: BUPRENORPHINE HYDROCHLORIDE
     Indication: PRODUCT USED FOR UNKNOWN INDICATION
     Dosage: 8 MILLIGRAM, QD
     Route: 065
  5. BUVIDAL [Suspect]
     Active Substance: BUPRENORPHINE
     Dosage: 24 MILLIGRAM, QMO
     Route: 065
     Dates: start: 20200225, end: 20200225
  6. RAMIPRIL. [Suspect]
     Active Substance: RAMIPRIL
     Indication: PRODUCT USED FOR UNKNOWN INDICATION
     Dosage: 5 MILLIGRAM, QD
     Route: 065
  7. BUVIDAL [Suspect]
     Active Substance: BUPRENORPHINE
     Dosage: 96 MILLIGRAM, QMO
     Route: 065
     Dates: start: 20200302, end: 20200302
  8. BUVIDAL [Suspect]
     Active Substance: BUPRENORPHINE
     Dosage: 128 MILLIGRAM, Q4WK
     Route: 065
  9. ADALAT [Suspect]
     Active Substance: NIFEDIPINE
     Indication: PRODUCT USED FOR UNKNOWN INDICATION
     Dosage: 40 MILLIGRAM, QD
     Route: 065
  10. BUVIDAL [Suspect]
     Active Substance: BUPRENORPHINE
     Dosage: 24 MILLIGRAM, QWK
     Route: 051
     Dates: start: 20200211, end: 20200211
  11. BUVIDAL [Suspect]
     Active Substance: BUPRENORPHINE
     Dosage: UNK
     Route: 065
  12. BUVIDAL [Suspect]
     Active Substance: BUPRENORPHINE
     Indication: PRODUCT USED FOR UNKNOWN INDICATION
     Dosage: 24 MILLIGRAM, QWK
     Route: 065
     Dates: start: 20200131, end: 20200131
  13. BUVIDAL [Suspect]
     Active Substance: BUPRENORPHINE
     Dosage: 96 MILLIGRAM, QMO
     Route: 051
     Dates: start: 20200324, end: 202011
  14. BUVIDAL [Suspect]
     Active Substance: BUPRENORPHINE
     Dosage: 128 MILLIGRAM, QMO
     Route: 051
     Dates: start: 20201201
  15. RIVOTRIL [Suspect]
     Active Substance: CLONAZEPAM
     Indication: PRODUCT USED FOR UNKNOWN INDICATION
     Dosage: 2 MILLIGRAM, UNKNOWN
     Route: 065
  16. METOPROLOL RETARD SANDOZ [Suspect]
     Active Substance: METOPROLOL FUMARATE
     Indication: PRODUCT USED FOR UNKNOWN INDICATION
     Dosage: 95 MILLIGRAM, QD
     Route: 065

REACTIONS (4)
  - Drug effect less than expected [Recovered/Resolved]
  - Maternal exposure during pregnancy [Recovered/Resolved]
  - Pre-eclampsia [Unknown]
  - Drug withdrawal syndrome [Unknown]

NARRATIVE: CASE EVENT DATE: 2020
